FAERS Safety Report 4912389-5 (Version None)
Quarter: 2006Q1

REPORT INFORMATION
  Report Type: 
  Country: None (occurrence: None)
  Receive Date: 20060215
  Receipt Date: 20050214
  Transmission Date: 20060701
  Serious: No
  Sender: FDA-Public Use
  Company Number: US-GLAXOSMITHKLINE-A0545472A

PATIENT
  Age: 53 Year
  Sex: Female

DRUGS (6)
  1. VALTREX [Suspect]
     Indication: HERPES ZOSTER
     Dosage: 1G THREE TIMES PER DAY
     Route: 048
     Dates: start: 20050209, end: 20050212
  2. TYLENOL SINUS [Concomitant]
  3. ADVIL [Concomitant]
  4. MULTIPLE VITAMIN [Concomitant]
  5. VITAMIN E [Concomitant]
  6. FLAXSEED OIL [Concomitant]

REACTIONS (3)
  - DYSGEUSIA [None]
  - GLOSSODYNIA [None]
  - HYPOAESTHESIA ORAL [None]
